FAERS Safety Report 13491805 (Version 5)
Quarter: 2017Q4

REPORT INFORMATION
  Report Type: Report from Study
  Country: NO (occurrence: NO)
  Receive Date: 20170427
  Receipt Date: 20171108
  Transmission Date: 20180320
  Serious: Yes (Death, Life-Threatening)
  Sender: FDA-Public Use
  Company Number: NO-CELGENEUS-NOR-20170406298

PATIENT
  Sex: Female

DRUGS (3)
  1. CYTARABIN [Suspect]
     Active Substance: CYTARABINE
     Indication: PRODUCT USED FOR UNKNOWN INDICATION
     Dosage: 3700 MILLIGRAM
     Route: 065
     Dates: start: 20170404, end: 20170409
  2. REVLIMID [Suspect]
     Active Substance: LENALIDOMIDE
     Indication: PRODUCT USED FOR UNKNOWN INDICATION
     Dosage: 15 MILLIGRAM
     Route: 048
     Dates: start: 20170404
  3. DAUNORUBICIN [Suspect]
     Active Substance: DAUNORUBICIN
     Indication: PRODUCT USED FOR UNKNOWN INDICATION
     Dosage: 111 MILLIGRAM
     Route: 065
     Dates: start: 20170404, end: 20170408

REACTIONS (4)
  - Intestinal ischaemia [Not Recovered/Not Resolved]
  - Colitis [Not Recovered/Not Resolved]
  - Peripheral ischaemia [Not Recovered/Not Resolved]
  - Mucormycosis [Fatal]

NARRATIVE: CASE EVENT DATE: 20170415
